FAERS Safety Report 14045182 (Version 1)
Quarter: 2017Q4

REPORT INFORMATION
  Report Type: Spontaneous
  Country: US (occurrence: US)
  Receive Date: 20171005
  Receipt Date: 20171005
  Transmission Date: 20180321
  Serious: Yes (Hospitalization)
  Sender: FDA-Public Use
  Company Number: None

PATIENT
  Age: 62 Year
  Sex: Female
  Weight: 47.4 kg

DRUGS (1)
  1. HEPARIN [Suspect]
     Active Substance: HEPARIN SODIUM
     Indication: ANTICOAGULANT THERAPY
     Dosage: ?          OTHER FREQUENCY:DURING PROCEDURE;?10000 KIU KILO INTERNATIONAL INTAVWNOUS BOLUS
     Route: 040
     Dates: start: 20171004, end: 20171004

REACTIONS (2)
  - Nausea [None]
  - Chest pain [None]

NARRATIVE: CASE EVENT DATE: 20171004
